FAERS Safety Report 9643798 (Version 3)
Quarter: 2015Q2

REPORT INFORMATION
  Report Type: Spontaneous
  Country: JP (occurrence: JP)
  Receive Date: 20131024
  Receipt Date: 20150518
  Transmission Date: 20150821
  Serious: Yes (Hospitalization)
  Sender: FDA-Public Use
  Company Number: PHHY2013JP117258

PATIENT
  Age: 64 Year
  Sex: Male
  Weight: 47 kg

DRUGS (2)
  1. HEPARIN [Suspect]
     Active Substance: HEPARIN SODIUM
     Indication: PRODUCT USED FOR UNKNOWN INDICATION
     Route: 065
  2. ACETYLSALICYLIC ACID [Suspect]
     Active Substance: ASPIRIN
     Indication: ISCHAEMIC HEART DISEASE PROPHYLAXIS
     Route: 065

REACTIONS (11)
  - Back pain [Unknown]
  - Haematuria [Recovered/Resolved]
  - Anaemia [Recovered/Resolved]
  - Perirenal haematoma [Recovered/Resolved]
  - Shock haemorrhagic [Recovered/Resolved]
  - Fatigue [Recovered/Resolved]
  - Flank pain [Recovered/Resolved]
  - Conjunctival pallor [Recovered/Resolved]
  - Renal cyst ruptured [Recovered/Resolved]
  - Tumour rupture [Recovered/Resolved]
  - Pallor [Recovered/Resolved]
